FAERS Safety Report 10382597 (Version 1)
Quarter: 2014Q3

REPORT INFORMATION
  Report Type: Spontaneous
  Country: US (occurrence: US)
  Receive Date: 20140813
  Receipt Date: 20140813
  Transmission Date: 20150326
  Serious: No
  Sender: FDA-Public Use
  Company Number: US-SA-2013SA122100

PATIENT
  Age: 73 Year
  Sex: Male

DRUGS (1)
  1. MULTAQ [Suspect]
     Active Substance: DRONEDARONE
     Indication: ATRIAL FIBRILLATION
     Dosage: PATIENT THAT HE PUT ON MULTAQ ABOUT A MONTH AGO
     Route: 048
     Dates: end: 20131115

REACTIONS (3)
  - Nausea [Unknown]
  - Hepatic enzyme increased [Unknown]
  - Dizziness [Unknown]
